FAERS Safety Report 7916603-3 (Version None)
Quarter: 2011Q4

REPORT INFORMATION
  Report Type: 
  Country: None (occurrence: None)
  Receive Date: 20111116
  Receipt Date: 20111111
  Transmission Date: 20120403
  Serious: No
  Sender: FDA-Public Use
  Company Number: US-PFIZER INC-2011276960

PATIENT
  Sex: Female
  Weight: 62.1 kg

DRUGS (7)
  1. ATENOLOL [Concomitant]
     Dosage: 100 MG, UNK
     Route: 048
  2. RANITIDINE [Concomitant]
     Dosage: 150 MG, UNK
     Route: 048
  3. SUTENT [Suspect]
     Dosage: 25 MG, 1X/DAY
     Route: 048
  4. LONOX [Concomitant]
     Dosage: 2.5 MG, UNK
     Route: 048
  5. LOMOTIL [Concomitant]
     Dosage: 2.5 MG, UNK
     Route: 048
  6. AMLODIPINE [Concomitant]
     Dosage: 10 MG, UNK
     Route: 048
  7. LORAZEPAM [Concomitant]
     Dosage: 0.5 MG, UNK
     Route: 048

REACTIONS (3)
  - DYSGEUSIA [None]
  - HAIR COLOUR CHANGES [None]
  - WEIGHT DECREASED [None]
